FAERS Safety Report 8982869 (Version 2)
Quarter: 2014Q2

REPORT INFORMATION
  Report Type: Spontaneous
  Country: US (occurrence: US)
  Receive Date: 20121224
  Receipt Date: 20131018
  Transmission Date: 20141212
  Serious: Yes (Other)
  Sender: FDA-Public Use
  Company Number: US-PFIZER INC-2012322144

PATIENT
  Age: 24 Year
  Sex: Male

DRUGS (7)
  1. DILANTIN [Suspect]
     Dosage: 200 MG, (TAKE 2 100 MG CAPSULES AT BADTIME)
     Route: 048
  2. STRATTERA [Concomitant]
     Dosage: 80 MG, DAILY
     Route: 048
  3. NEXIUM [Concomitant]
     Dosage: 40 MG, EVERY MORNING BEFORE BREAKFAST
     Route: 048
  4. CRESTOR [Concomitant]
     Dosage: 10 MG, EVERY EVENING
     Route: 048
  5. TOPAMAX [Concomitant]
     Dosage: 200 MG, 2X/DAY
     Route: 048
  6. VITAMIN B12 [Concomitant]
     Dosage: 2500 UG, DAILY
     Route: 060
  7. VITAMIN D3 [Concomitant]
     Dosage: 2000 UNIT, DAILY
     Route: 048

REACTIONS (6)
  - Convulsion [Unknown]
  - Blood cholesterol increased [Unknown]
  - Gastrooesophageal reflux disease [Unknown]
  - Attention deficit/hyperactivity disorder [Unknown]
  - Vitamin D deficiency [Unknown]
  - Vitamin B12 deficiency [Unknown]
